FAERS Safety Report 22379347 (Version 1)
Quarter: 2023Q2

REPORT INFORMATION
  Report Type: Spontaneous
  Country: US (occurrence: US)
  Receive Date: 20230529
  Receipt Date: 20230529
  Transmission Date: 20230722
  Serious: No
  Sender: FDA-Public Use
  Company Number: US-BIOGEN-2023BI01199529

PATIENT
  Sex: Female

DRUGS (5)
  1. VUMERITY [Suspect]
     Active Substance: DIROXIMEL FUMARATE
     Indication: Multiple sclerosis
     Dosage: TAKE 2 CAPSULES (462MG) BY MOUTH TWICE DAILY.
     Route: 050
  2. VITAMIN D3 [Concomitant]
     Active Substance: CHOLECALCIFEROL
     Route: 050
  3. OMEGA 3 [Concomitant]
     Active Substance: CAPSAICIN
     Route: 050
  4. CLARITIN REDITABS [Concomitant]
     Active Substance: LORATADINE
     Route: 050
  5. TUMS [Concomitant]
     Active Substance: CALCIUM CARBONATE
     Route: 050

REACTIONS (4)
  - White blood cell count decreased [Unknown]
  - Neutrophil count decreased [Unknown]
  - Malaise [Unknown]
  - Lymphocyte count decreased [Unknown]

NARRATIVE: CASE EVENT DATE: 20220101
